FAERS Safety Report 18519241 (Version 3)
Quarter: 2020Q4

REPORT INFORMATION
  Report Type: Spontaneous
  Country: JP (occurrence: JP)
  Receive Date: 20201118
  Receipt Date: 20201126
  Transmission Date: 20210114
  Serious: Yes (Other)
  Sender: FDA-Public Use
  Company Number: JP-PFIZER INC-2020119548

PATIENT
  Age: 57 Year
  Sex: Female
  Weight: 42 kg

DRUGS (2)
  1. XELJANZ [Suspect]
     Active Substance: TOFACITINIB CITRATE
     Indication: COLITIS ULCERATIVE
     Dosage: 10 MG, 2X/DAY
     Route: 048
     Dates: start: 20200205, end: 20200304
  2. PENTASA [Suspect]
     Active Substance: MESALAMINE
     Dosage: UNK

REACTIONS (4)
  - Rash [Unknown]
  - Facial paralysis [Recovered/Resolved]
  - Deafness [Unknown]
  - Herpes zoster oticus [Recovered/Resolved]

NARRATIVE: CASE EVENT DATE: 2020
